FAERS Safety Report 5072907-6 (Version None)
Quarter: 2006Q3

REPORT INFORMATION
  Report Type: 
  Country: None (occurrence: None)
  Receive Date: 20060802
  Receipt Date: 20060721
  Transmission Date: 20061208
  Serious: Yes (Hospitalization, Other)
  Sender: FDA-Public Use
  Company Number: HQWYE950910OCT05

PATIENT
  Age: 29 Year
  Sex: Male

DRUGS (9)
  1. CYCLOSPORINE [Suspect]
     Indication: PROPHYLAXIS AGAINST TRANSPLANT REJECTION
     Dosage: 400 MG 1X PER 1 DAY ORAL; 200 MG 1X PER 1 DAY ORAL; 350 MG 1X PER 1 DAY ORAL
     Route: 048
     Dates: start: 20050922, end: 20050927
  2. CYCLOSPORINE [Suspect]
     Indication: PROPHYLAXIS AGAINST TRANSPLANT REJECTION
     Dosage: 400 MG 1X PER 1 DAY ORAL; 200 MG 1X PER 1 DAY ORAL; 350 MG 1X PER 1 DAY ORAL
     Route: 048
     Dates: start: 20050928, end: 20051101
  3. CYCLOSPORINE [Suspect]
     Indication: PROPHYLAXIS AGAINST TRANSPLANT REJECTION
     Dosage: 400 MG 1X PER 1 DAY ORAL; 200 MG 1X PER 1 DAY ORAL; 350 MG 1X PER 1 DAY ORAL
     Route: 048
     Dates: start: 20051101
  4. METHYLPREDNISOLONE                    (METHYLPREDNISOLONE) [Concomitant]
  5. MYCOPHENOLATE MOFETIL [Concomitant]
  6. REVIPARIN SODIUM                   (HEPARIN-FRACTION, SODIUM SALT) [Concomitant]
  7. BROMAZEPAM                  (BROMAZEPAM) [Concomitant]
  8. OMEPRAZOLE [Concomitant]
  9. AMOXICILLIN [Concomitant]

REACTIONS (3)
  - BLOOD CREATININE INCREASED [None]
  - DRUG TOXICITY [None]
  - GRAFT DYSFUNCTION [None]
